FAERS Safety Report 17044729 (Version 1)
Quarter: 2019Q4

REPORT INFORMATION
  Report Type: Spontaneous
  Country: US (occurrence: US)
  Receive Date: 20191018
  Receipt Date: 20191018
  Transmission Date: 20200122
  Serious: Yes (Other)
  Sender: FDA-Public Use
  Company Number: None

PATIENT
  Age: 33 Year
  Sex: Female

DRUGS (2)
  1. OCREVUS INFUSIONS [Concomitant]
  2. OCRELIZUMAB. [Suspect]
     Active Substance: OCRELIZUMAB

REACTIONS (7)
  - Ophthalmic herpes simplex [None]
  - Foreign body sensation in eyes [None]
  - Pruritus [None]
  - Vision blurred [None]
  - Dry eye [None]
  - Hypoaesthesia eye [None]
  - Photophobia [None]
